FAERS Safety Report 20832573 (Version 1)
Quarter: 2022Q2

REPORT INFORMATION
  Report Type: 
  Country: None (occurrence: None)
  Receive Date: 20220516
  Receipt Date: 20220516
  Transmission Date: 20220721
  Serious: No
  Sender: FDA-Public Use
  Company Number: US-ROCHE-2615855

PATIENT
  Age: 49 Year
  Weight: 72.640 kg

DRUGS (8)
  1. OCREVUS [Suspect]
     Active Substance: OCRELIZUMAB
     Dosage: ONGOING: YES?DATE OF TREATMENT: 14/MAY/2018, 29/MAY/2018, 06/NOV/2018, 03/MAY/2019, 04/NOV/2019, 01/
     Dates: start: 20180514
  2. OCREVUS [Suspect]
     Active Substance: OCRELIZUMAB
     Dates: start: 201803
  3. LATUDA [Concomitant]
     Active Substance: LURASIDONE HYDROCHLORIDE
     Dates: start: 2016
  4. VENLAFAXINE [Concomitant]
     Active Substance: VENLAFAXINE HYDROCHLORIDE
     Dates: start: 2016
  5. DEPAKOTE [Concomitant]
     Active Substance: DIVALPROEX SODIUM
     Dosage: EVERY EVENING
  6. TRAZODONE [Concomitant]
     Active Substance: TRAZODONE HYDROCHLORIDE
     Dosage: 2 TABLETS OF 150 MG AT BEDTIME
     Dates: start: 2001
  7. CRANBERRY [Concomitant]
     Active Substance: CRANBERRY
  8. CALCIUM [Concomitant]
     Active Substance: CALCIUM
     Dates: start: 2017

REACTIONS (4)
  - Gait disturbance [None]
  - Pain [None]
  - Cystitis [None]
  - Therapeutic product effect decreased [None]

NARRATIVE: CASE EVENT DATE: 20190101
